FAERS Safety Report 17610778 (Version 1)
Quarter: 2020Q1

REPORT INFORMATION
  Report Type: Spontaneous
  Country: US (occurrence: US)
  Receive Date: 20200330
  Receipt Date: 20200330
  Transmission Date: 20200409
  Serious: Yes (Life-Threatening, Hospitalization)
  Sender: FDA-Public Use
  Company Number: None

PATIENT
  Age: 69 Year
  Sex: Male
  Weight: 76 kg

DRUGS (1)
  1. DARATUMUMAB (DARATUMUMAB 20MG/ML INJ,SOLN) [Suspect]
     Active Substance: DARATUMUMAB
     Indication: PLASMA CELL MYELOMA
     Dates: end: 20200313

REACTIONS (6)
  - Anaphylactic reaction [None]
  - Tachypnoea [None]
  - Respiratory distress [None]
  - Chills [None]
  - Tachycardia [None]
  - Wheezing [None]

NARRATIVE: CASE EVENT DATE: 20200303
